FAERS Safety Report 10541058 (Version 1)
Quarter: 2014Q4

REPORT INFORMATION
  Report Type: Spontaneous
  Country: US (occurrence: None)
  Receive Date: 20141010
  Receipt Date: 20141010
  Transmission Date: 20150529
  Serious: No
  Sender: FDA-Public Use
  Company Number: 163-POMAL-14081131

PATIENT
  Age: 74 Year
  Sex: Male
  Weight: 81.65 kg

DRUGS (13)
  1. TEMAZEPAM (TEMAZEPAM) (UNKNOWN) [Concomitant]
  2. VITAMIN D (ERGOCALCIFEROL) (UNKNOWN) [Concomitant]
  3. COUMADIN [Concomitant]
     Active Substance: WARFARIN SODIUM
  4. DEXAMETHASONE (DEXAMETHASONE) (UNKNOWN) [Concomitant]
     Active Substance: DEXAMETHASONE
  5. POMALYST [Suspect]
     Active Substance: POMALIDOMIDE
     Indication: PLASMA CELL MYELOMA
     Dosage: 4 MG, 1 IN 1 D, AUR
     Dates: start: 201306
  6. METOPROL (METOPROLOL) (UNKNOWN) [Concomitant]
  7. LORAZEPAM (LORAZEPAM) (UNKNOWN) (LORAZEPAM) [Concomitant]
     Active Substance: LORAZEPAM
  8. VITAMIN B (VITAMIN B) (UNKNOWN) [Concomitant]
  9. CENTRUM (CENTRUM) (UNKNOWN) [Concomitant]
  10. PROCRIT (ERYTHROPOIETIN) (UNKNOWN) [Concomitant]
  11. CLARITHROMYCIN (CLARITHROMYCIN) (UNKNOWN) (CLARITHROMYCIN) [Concomitant]
     Active Substance: CLARITHROMYCIN
  12. IMODIUM (LOPERAMIDE HYDROCHLORIDE) (UNKNOWN) [Concomitant]
  13. ACYCLOVIR (ACICLOVIR) (UNKNOWN) [Concomitant]

REACTIONS (1)
  - Dysphonia [None]

NARRATIVE: CASE EVENT DATE: 20140804
